FAERS Safety Report 5549884-4 (Version None)
Quarter: 2007Q4

REPORT INFORMATION
  Report Type: 
  Country: None (occurrence: None)
  Receive Date: 20071212
  Receipt Date: 20071211
  Transmission Date: 20080405
  Serious: Yes (Life-Threatening)
  Sender: FDA-Public Use
  Company Number: CZ-BRISTOL-MYERS SQUIBB COMPANY-13085576

PATIENT
  Age: 40 Year
  Sex: Female

DRUGS (7)
  1. AMIKIN [Suspect]
     Indication: ACUTE LEUKAEMIA
     Route: 042
     Dates: start: 20050629, end: 20050630
  2. FORTUM [Concomitant]
     Route: 042
  3. VANCOMYCIN HCL [Concomitant]
     Route: 042
  4. SPORANOX [Concomitant]
  5. FRAXIPARINE [Concomitant]
     Route: 058
  6. NORETHISTERONE [Concomitant]
     Route: 048
  7. SILYMARIN [Concomitant]
     Route: 048

REACTIONS (3)
  - BRONCHOSPASM [None]
  - PYREXIA [None]
  - SUPRAVENTRICULAR TACHYCARDIA [None]
